FAERS Safety Report 7864671-X (Version None)
Quarter: 2011Q4

REPORT INFORMATION
  Report Type: 
  Country: None (occurrence: None)
  Receive Date: 20111028
  Receipt Date: 20111003
  Transmission Date: 20120403
  Serious: Yes (Hospitalization)
  Sender: FDA-Public Use
  Company Number: IL-ELI_LILLY_AND_COMPANY-IL201109007784

PATIENT
  Age: 90 Year
  Sex: Female

DRUGS (5)
  1. GEMZAR [Suspect]
     Indication: PRIMARY EFFUSION LYMPHOMA
  2. CYCLOPHOSPHAMIDE [Concomitant]
     Indication: PRIMARY EFFUSION LYMPHOMA
  3. DOXORUBICIN HCL [Concomitant]
     Indication: PRIMARY EFFUSION LYMPHOMA
  4. PREDNISONE [Concomitant]
     Indication: PRIMARY EFFUSION LYMPHOMA
     Dosage: UNK
  5. NEULASTIM [Concomitant]
     Indication: PROPHYLAXIS

REACTIONS (3)
  - CELLULITIS [None]
  - SEPSIS [None]
  - INFECTION [None]
